FAERS Safety Report 10366294 (Version 4)
Quarter: 2015Q3

REPORT INFORMATION
  Report Type: Report from Study
  Country: US (occurrence: US)
  Receive Date: 20140806
  Receipt Date: 20150714
  Transmission Date: 20151125
  Serious: Yes (Hospitalization, Other)
  Sender: FDA-Public Use
  Company Number: PHEH2014US015379

PATIENT
  Sex: Female

DRUGS (3)
  1. VALSARTAN. [Suspect]
     Active Substance: VALSARTAN
     Dosage: UNK UKN, UNK
  2. DIOVAN [Suspect]
     Active Substance: VALSARTAN
     Dosage: 160 MG, UNK
     Route: 048
  3. TEKTURNA [Suspect]
     Active Substance: ALISKIREN HEMIFUMARATE
     Dosage: 300 MG, UNK
     Route: 048

REACTIONS (2)
  - Feeling abnormal [Unknown]
  - Drug ineffective [Unknown]
